FAERS Safety Report 13068360 (Version 2)
Quarter: 2017Q1

REPORT INFORMATION
  Report Type: Spontaneous
  Country: DE (occurrence: DE)
  Receive Date: 20161228
  Receipt Date: 20170116
  Transmission Date: 20170428
  Serious: Yes (Other)
  Sender: FDA-Public Use
  Company Number: DE-ABBVIE-16P-062-1821792-00

PATIENT
  Age: 8 Year
  Sex: Male

DRUGS (2)
  1. TOPIRAMATE. [Suspect]
     Active Substance: TOPIRAMATE
     Indication: GENERALISED TONIC-CLONIC SEIZURE
     Route: 065
  2. VALPROIC ACID. [Suspect]
     Active Substance: VALPROIC ACID
     Indication: GENERALISED TONIC-CLONIC SEIZURE
     Route: 065

REACTIONS (4)
  - Therapeutic response decreased [Unknown]
  - Condition aggravated [Recovered/Resolved]
  - Generalised tonic-clonic seizure [Unknown]
  - Drug ineffective [Recovered/Resolved]
